FAERS Safety Report 6292810-3 (Version None)
Quarter: 2009Q3

REPORT INFORMATION
  Report Type: 
  Country: None (occurrence: None)
  Receive Date: 20090731
  Receipt Date: 20090720
  Transmission Date: 20100115
  Serious: Yes (Other)
  Sender: FDA-Public Use
  Company Number: US-WATSON-2009-05675

PATIENT
  Sex: Male

DRUGS (2)
  1. FENTANYL-100 [Suspect]
     Indication: NEURALGIA
     Dosage: 100 MCG, UNK
     Route: 062
     Dates: start: 20090614
  2. FENTANYL-100 [Suspect]
     Dosage: 1 PATCH, Q 3 DAYS
     Route: 062
     Dates: start: 20080101

REACTIONS (7)
  - CONFUSIONAL STATE [None]
  - DISORIENTATION [None]
  - DIZZINESS [None]
  - DRUG INEFFECTIVE [None]
  - HYPERHIDROSIS [None]
  - LOSS OF CONSCIOUSNESS [None]
  - TREMOR [None]
